FAERS Safety Report 9815519 (Version 1)
Quarter: 2014Q1

REPORT INFORMATION
  Report Type: Report from Study
  Country: CA (occurrence: CA)
  Receive Date: 20140114
  Receipt Date: 20140114
  Transmission Date: 20141002
  Serious: Yes (Hospitalization)
  Sender: FDA-Public Use
  Company Number: CA-JNJFOC-20140104851

PATIENT
  Age: 63 Year
  Sex: Male
  Weight: 68.95 kg

DRUGS (4)
  1. REMICADE [Suspect]
     Indication: CROHN^S DISEASE
     Route: 042
     Dates: start: 20110124
  2. TAMSULOSIN HYDROCHLORIDE [Concomitant]
     Route: 065
  3. FLUOROURACIL [Concomitant]
     Route: 065
  4. FUSIDIC ACID [Concomitant]
     Route: 065

REACTIONS (1)
  - Intestinal resection [Recovered/Resolved]
